FAERS Safety Report 17780568 (Version 6)
Quarter: 2021Q3

REPORT INFORMATION
  Report Type: Spontaneous
  Country: US (occurrence: US)
  Receive Date: 20200514
  Receipt Date: 20210713
  Transmission Date: 20211014
  Serious: Yes (Hospitalization, Other)
  Sender: FDA-Public Use
  Company Number: US-GILEAD-2020-0466910

PATIENT
  Age: 27 Year
  Sex: Male
  Weight: 56.24 kg

DRUGS (39)
  1. TRUVADA [Suspect]
     Active Substance: EMTRICITABINE\TENOFOVIR DISOPROXIL FUMARATE
     Dosage: UNK
     Route: 065
     Dates: start: 20111013, end: 201310
  2. VIREAD [Suspect]
     Active Substance: TENOFOVIR DISOPROXIL FUMARATE
     Indication: HIV INFECTION
     Dosage: UNK
     Route: 048
     Dates: start: 200803, end: 2015
  3. BACTRIM [Concomitant]
     Active Substance: SULFAMETHOXAZOLE\TRIMETHOPRIM
  4. LISINOPRIL. [Concomitant]
     Active Substance: LISINOPRIL
  5. LABETALOL HYDROCHLORIDE. [Concomitant]
     Active Substance: LABETALOL HYDROCHLORIDE
  6. GLUCAGON. [Concomitant]
     Active Substance: GLUCAGON
  7. TRAZODONE [Concomitant]
     Active Substance: TRAZODONE HYDROCHLORIDE
  8. ASPIRIN 81 [Concomitant]
     Active Substance: ASPIRIN
  9. PRAVASTATIN. [Concomitant]
     Active Substance: PRAVASTATIN
  10. NAPROXEN. [Concomitant]
     Active Substance: NAPROXEN
  11. GADOLINIUM [Concomitant]
     Active Substance: GADOLINIUM
  12. EPIVIR [Concomitant]
     Active Substance: LAMIVUDINE
  13. NORVIR [Concomitant]
     Active Substance: RITONAVIR
  14. ZIAGEN [Concomitant]
     Active Substance: ABACAVIR SULFATE
  15. TRUVADA [Suspect]
     Active Substance: EMTRICITABINE\TENOFOVIR DISOPROXIL FUMARATE
     Dosage: UNK
     Route: 065
     Dates: start: 20131025, end: 201408
  16. HYDROCORTISONE. [Concomitant]
     Active Substance: HYDROCORTISONE
  17. LANSOPRAZOLE. [Concomitant]
     Active Substance: LANSOPRAZOLE
  18. CITALOPRAM [Concomitant]
     Active Substance: CITALOPRAM HYDROBROMIDE
  19. CYANOCOBALAMINE [Concomitant]
     Active Substance: CYANOCOBALAMIN
  20. AMITRIPTYLINE [Concomitant]
     Active Substance: AMITRIPTYLINE
  21. NIFEDIPINE. [Concomitant]
     Active Substance: NIFEDIPINE
  22. TRUVADA [Suspect]
     Active Substance: EMTRICITABINE\TENOFOVIR DISOPROXIL FUMARATE
     Dosage: UNK
     Route: 065
     Dates: start: 20140808, end: 201411
  23. LOVENOX [Concomitant]
     Active Substance: ENOXAPARIN SODIUM
  24. HUMALOG [Concomitant]
     Active Substance: INSULIN LISPRO
  25. TIVICAY [Concomitant]
     Active Substance: DOLUTEGRAVIR SODIUM
  26. ABACAVIR. [Concomitant]
     Active Substance: ABACAVIR
  27. AMOXICILLIN. [Concomitant]
     Active Substance: AMOXICILLIN
  28. ATORVASTATIN [Concomitant]
     Active Substance: ATORVASTATIN
  29. AMLODIPINE [Concomitant]
     Active Substance: AMLODIPINE BESYLATE
  30. CRESTOR [Concomitant]
     Active Substance: ROSUVASTATIN CALCIUM
  31. DEPO?TESTOSTERONE [Concomitant]
     Active Substance: TESTOSTERONE CYPIONATE
  32. OMEPRAZOLE. [Concomitant]
     Active Substance: OMEPRAZOLE
  33. PREZCOBIX [Concomitant]
     Active Substance: COBICISTAT\DARUNAVIR ETHANOLATE
  34. GABAPENTIN. [Concomitant]
     Active Substance: GABAPENTIN
  35. TRUVADA [Suspect]
     Active Substance: EMTRICITABINE\TENOFOVIR DISOPROXIL FUMARATE
     Indication: HIV INFECTION
     Dosage: UNK
     Route: 048
     Dates: start: 2007, end: 2015
  36. ACETAMINOPHEN. [Concomitant]
     Active Substance: ACETAMINOPHEN
  37. LANTUS [Concomitant]
     Active Substance: INSULIN GLARGINE
  38. EPZICOM [Concomitant]
     Active Substance: ABACAVIR SULFATE\LAMIVUDINE
  39. FAMOTIDINE. [Concomitant]
     Active Substance: FAMOTIDINE

REACTIONS (20)
  - Osteoporosis [Not Recovered/Not Resolved]
  - Pain [Unknown]
  - Foot fracture [Not Recovered/Not Resolved]
  - Hyperkalaemia [Recovered/Resolved]
  - Renal failure [Not Recovered/Not Resolved]
  - Nephropathy [Not Recovered/Not Resolved]
  - Proteinuria [Not Recovered/Not Resolved]
  - Bone density decreased [Unknown]
  - Hypertension [Not Recovered/Not Resolved]
  - Emotional distress [Unknown]
  - Acute kidney injury [Recovered/Resolved]
  - End stage renal disease [Not Recovered/Not Resolved]
  - Hyperkalaemia [Recovered/Resolved]
  - Acute kidney injury [Recovered/Resolved]
  - Foot fracture [Recovered/Resolved]
  - Anaemia of chronic disease [Not Recovered/Not Resolved]
  - Multiple fractures [Unknown]
  - Osteopenia [Unknown]
  - Chronic kidney disease [Not Recovered/Not Resolved]
  - Renal impairment [Unknown]

NARRATIVE: CASE EVENT DATE: 2015
